FAERS Safety Report 23328495 (Version 5)
Quarter: 2024Q4

REPORT INFORMATION
  Report Type: Spontaneous
  Country: JP (occurrence: JP)
  Receive Date: 20231221
  Receipt Date: 20241209
  Transmission Date: 20250115
  Serious: Yes (Other)
  Sender: TAKEDA
  Company Number: JP-TAKEDA-2023TJP017081

PATIENT
  Age: 11 Year
  Sex: Male
  Weight: 43.9 kg

DRUGS (7)
  1. ANTIHEMOPHILIC FACTOR, PEGYLATED (MW 20000) HUMAN SEQUENCE RECOMBINANT [Suspect]
     Active Substance: ANTIHEMOPHILIC FACTOR, PEGYLATED (MW 20000) HUMAN SEQUENCE RECOMBINANT
     Indication: Factor VIII deficiency
     Dosage: 2000 INTERNATIONAL UNIT, 2/WEEK
     Dates: start: 20200201, end: 2024
  2. ANTIHEMOPHILIC FACTOR, PEGYLATED (MW 20000) HUMAN SEQUENCE RECOMBINANT [Suspect]
     Active Substance: ANTIHEMOPHILIC FACTOR, PEGYLATED (MW 20000) HUMAN SEQUENCE RECOMBINANT
     Dosage: 1000 INTERNATIONAL UNIT, 2/WEEK
     Dates: start: 20200210, end: 20200803
  3. ANTIHEMOPHILIC FACTOR, PEGYLATED (MW 20000) HUMAN SEQUENCE RECOMBINANT [Suspect]
     Active Substance: ANTIHEMOPHILIC FACTOR, PEGYLATED (MW 20000) HUMAN SEQUENCE RECOMBINANT
     Dosage: 1500 INTERNATIONAL UNIT, 2/WEEK
     Dates: start: 20200805, end: 20230929
  4. ANTIHEMOPHILIC FACTOR, PEGYLATED (MW 20000) HUMAN SEQUENCE RECOMBINANT [Suspect]
     Active Substance: ANTIHEMOPHILIC FACTOR, PEGYLATED (MW 20000) HUMAN SEQUENCE RECOMBINANT
     Dosage: 2000 INTERNATIONAL UNIT, 2/WEEK
     Dates: start: 20231003
  5. ANTIHEMOPHILIC FACTOR, PEGYLATED (MW 20000) HUMAN SEQUENCE RECOMBINANT [Suspect]
     Active Substance: ANTIHEMOPHILIC FACTOR, PEGYLATED (MW 20000) HUMAN SEQUENCE RECOMBINANT
     Dosage: 3000 INTERNATIONAL UNIT, 2/WEEK
     Dates: start: 202405, end: 20241024
  6. LEVETIRACETAM [Concomitant]
     Active Substance: LEVETIRACETAM
     Indication: Idiopathic partial epilepsy
     Dosage: 1400 MILLIGRAM
  7. VIMPAT [Concomitant]
     Active Substance: LACOSAMIDE
     Indication: Idiopathic partial epilepsy
     Dosage: 100 MILLIGRAM, BID
     Dates: start: 20220506

REACTIONS (6)
  - Gingival bleeding [Recovered/Resolved]
  - Haematuria [Recovered/Resolved]
  - Haematuria [Recovered/Resolved]
  - Pain in extremity [Recovered/Resolved]
  - Back pain [Recovered/Resolved]
  - Joint range of motion decreased [Recovered/Resolved]

NARRATIVE: CASE EVENT DATE: 20230701
